FAERS Safety Report 7816506-9 (Version None)
Quarter: 2011Q4

REPORT INFORMATION
  Report Type: 
  Country: None (occurrence: None)
  Receive Date: 20111017
  Receipt Date: 20111006
  Transmission Date: 20120403
  Serious: Yes (Other)
  Sender: FDA-Public Use
  Company Number: US-JNJFOC-20111003070

PATIENT
  Sex: Male

DRUGS (2)
  1. REMICADE [Suspect]
     Indication: CROHN'S DISEASE
     Dosage: 6 VIALS
     Route: 042
     Dates: start: 20110901
  2. REMICADE [Suspect]
     Dosage: 4 VIALS
     Route: 042
     Dates: start: 20110501

REACTIONS (2)
  - BRONCHITIS [None]
  - DIARRHOEA [None]
